FAERS Safety Report 6268893-3 (Version None)
Quarter: 2009Q3

REPORT INFORMATION
  Report Type: 
  Country: None (occurrence: None)
  Receive Date: 20090715
  Receipt Date: 20090707
  Transmission Date: 20100115
  Serious: Yes (Other)
  Sender: FDA-Public Use
  Company Number: PHEH2008US03405

PATIENT
  Sex: Male

DRUGS (4)
  1. AREDIA [Suspect]
     Dosage: MONTHLY
  2. INTERFERON [Concomitant]
  3. PROCRIT                            /00909301/ [Concomitant]
  4. DECADRON                                /CAN/ [Concomitant]

REACTIONS (11)
  - ANXIETY [None]
  - ARTHRALGIA [None]
  - BACK PAIN [None]
  - BONE PAIN [None]
  - GENERAL PHYSICAL HEALTH DETERIORATION [None]
  - INFECTION [None]
  - INTERVERTEBRAL DISC COMPRESSION [None]
  - INTERVERTEBRAL DISC DEGENERATION [None]
  - JOINT EFFUSION [None]
  - OSTEONECROSIS [None]
  - PAIN [None]
